FAERS Safety Report 8017142-4 (Version None)
Quarter: 2012Q1

REPORT INFORMATION
  Report Type: 
  Country: None (occurrence: None)
  Receive Date: 20120102
  Receipt Date: 20111123
  Transmission Date: 20120608
  Serious: Yes (Life-Threatening)
  Sender: FDA-Public Use
  Company Number: FR-ROCHE-1026314

PATIENT
  Sex: Male

DRUGS (3)
  1. EVEROLIMUS [Suspect]
     Indication: TRANSPLANT REJECTION
     Dates: start: 20110831
  2. MYCOPHENOLATE MOFETIL (CELLCEPT) [Suspect]
     Indication: TRANSPLANT REJECTION
     Route: 002
     Dates: start: 20110827
  3. ANTITHYMOCYTE IMMUNOGLOBULIN [Suspect]
     Indication: TRANSPLANT REJECTION
     Dosage: 5 MG/ML
     Route: 042
     Dates: start: 20110826, end: 20110830

REACTIONS (2)
  - FLUID RETENTION [None]
  - ACUTE PULMONARY OEDEMA [None]
